FAERS Safety Report 7879098-4 (Version None)
Quarter: 2011Q4

REPORT INFORMATION
  Report Type: 
  Country: None (occurrence: None)
  Receive Date: 20111101
  Receipt Date: 20111026
  Transmission Date: 20120403
  Serious: Yes (Other)
  Sender: FDA-Public Use
  Company Number: PHEH2011US07875

PATIENT
  Age: 89 Year
  Sex: Male

DRUGS (9)
  1. LANTUS [Concomitant]
  2. ASPIRIN [Concomitant]
  3. LISINOPRIL [Concomitant]
  4. HUMALOG [Concomitant]
  5. VITAMIN D [Concomitant]
  6. ZOMETA [Suspect]
  7. CALCIUM [Concomitant]
  8. METFORMIN HCL [Concomitant]
  9. LOVASTATIN [Concomitant]

REACTIONS (2)
  - HYPOKINESIA [None]
  - RASH GENERALISED [None]
